FAERS Safety Report 10180599 (Version 2)
Quarter: 2014Q2

REPORT INFORMATION
  Report Type: Spontaneous
  Country: US (occurrence: US)
  Receive Date: 20140519
  Receipt Date: 20140519
  Transmission Date: 20141212
  Serious: No
  Sender: FDA-Public Use
  Company Number: US-AMGEN INC.-USASP2014011750

PATIENT
  Age: 81 Year
  Sex: Female
  Weight: 48.89 kg

DRUGS (1)
  1. PROLIA [Suspect]
     Indication: OSTEOPOROSIS POSTMENOPAUSAL
     Dosage: UNK UNK, Q6MO
     Route: 058
     Dates: start: 20110213, end: 20131021

REACTIONS (3)
  - Rash pruritic [Unknown]
  - Neurodermatitis [Recovering/Resolving]
  - Actinic keratosis [Not Recovered/Not Resolved]
